FAERS Safety Report 4940990-1 (Version None)
Quarter: 2006Q1

REPORT INFORMATION
  Report Type: 
  Country: None (occurrence: None)
  Receive Date: 20060307
  Receipt Date: 20060227
  Transmission Date: 20060701
  Serious: Yes (Other)
  Sender: FDA-Public Use
  Company Number: S06-USA-00681-02

PATIENT
  Age: 2 Day

DRUGS (10)
  1. LEXAPRO [Suspect]
     Dosage: MG TRANSPLACENTAL
     Route: 064
     Dates: end: 20060208
  2. LEXAPRO [Suspect]
     Dosage: MG BF
     Dates: start: 20060208
  3. TOPAMAX [Suspect]
     Dosage: MG TRANSPLACENTAL
     Route: 064
     Dates: end: 20060208
  4. TOPAMAX [Suspect]
     Dosage: MG BF
     Dates: start: 20060208
  5. ABILIFY [Suspect]
     Dosage: MG TRANSPLACENTAL
     Route: 064
     Dates: end: 20060208
  6. ABILIFY [Suspect]
     Dosage: MG BF
     Dates: start: 20060208
  7. REMERON [Suspect]
     Dosage: MG TRANSPLACENTAL
     Route: 064
     Dates: end: 20060208
  8. REMERON [Suspect]
     Dosage: MG BF
     Dates: start: 20060208
  9. ZYPREXA [Suspect]
     Dosage: MG TRANSPLACENTAL
     Route: 064
     Dates: end: 20060208
  10. ZYPREXA [Suspect]
     Dosage: MG BF
     Dates: start: 20060208

REACTIONS (4)
  - DRUG EXPOSURE DURING PREGNANCY [None]
  - DRUG EXPOSURE VIA BREAST MILK [None]
  - FEEDING DISORDER NEONATAL [None]
  - NEONATAL OVERSEDATION [None]
